FAERS Safety Report 8213149-2 (Version None)
Quarter: 2012Q1

REPORT INFORMATION
  Report Type: 
  Country: None (occurrence: None)
  Receive Date: 20120315
  Receipt Date: 20120312
  Transmission Date: 20120608
  Serious: Yes (Life-Threatening, Hospitalization)
  Sender: FDA-Public Use
  Company Number: DE-PFIZER INC-2009RR-25688

PATIENT
  Age: 77 Year
  Sex: Female

DRUGS (13)
  1. PREDNISOLONE [Interacting]
     Indication: RHEUMATOID ARTHRITIS
     Dosage: UNK
     Route: 048
     Dates: start: 20060901
  2. DIGITOXIN INJ [Interacting]
     Indication: ATRIAL FIBRILLATION
     Dosage: 0.07 MG, QD
     Route: 048
     Dates: start: 20070901, end: 20090514
  3. ACETYLSALICYLIC ACID [Concomitant]
     Dosage: UNK
     Route: 065
     Dates: start: 20080501
  4. METHOTREXATE [Concomitant]
     Dosage: UNK
     Dates: start: 20090202, end: 20090216
  5. ISOPTIN [Interacting]
     Indication: ATRIAL FIBRILLATION
     Dosage: UNK
     Route: 048
     Dates: start: 20060101, end: 20090514
  6. VOLTAREN [Suspect]
     Indication: RHEUMATOID ARTHRITIS
     Dosage: UNK
     Route: 048
     Dates: start: 20060901, end: 20090516
  7. AMBROXOL [Concomitant]
     Dosage: UNK
     Dates: start: 20090501, end: 20090511
  8. SYMBICORT [Concomitant]
     Dosage: UNK
     Dates: start: 20090501
  9. LEVOTHYROXINE SODIUM [Concomitant]
     Dosage: UNK
     Route: 065
     Dates: start: 19960101
  10. ESIDRIX [Concomitant]
     Dosage: UNK
     Route: 065
     Dates: start: 20070101
  11. FOSAMAX [Concomitant]
     Dosage: UNK
     Dates: start: 20060101
  12. CALCIUM D3 [Concomitant]
     Dosage: UNK
     Dates: start: 20060101
  13. AZITHROMYCIN [Interacting]
     Indication: BRONCHITIS
     Dosage: UNK
     Route: 065
     Dates: start: 20090501, end: 20090511

REACTIONS (3)
  - PULMONARY EMBOLISM [None]
  - TOXICITY TO VARIOUS AGENTS [None]
  - DRUG INTERACTION [None]
